FAERS Safety Report 4954038-6 (Version None)
Quarter: 2006Q1

REPORT INFORMATION
  Report Type: 
  Country: None (occurrence: None)
  Receive Date: 20060322
  Receipt Date: 20060313
  Transmission Date: 20060701
  Serious: Yes (Hospitalization)
  Sender: FDA-Public Use
  Company Number: OMPQ-NO-0603S-0127

PATIENT
  Age: 77 Year
  Sex: Male

DRUGS (2)
  1. OMNIPAQUE 140 [Suspect]
     Indication: PANCREATIC PSEUDOCYST
     Dosage: 100 ML, SINGLE DOSE, I.V.
     Route: 042
     Dates: start: 20060215, end: 20060215
  2. GABEXATE MESILATE (REMINARON) [Concomitant]

REACTIONS (2)
  - BLOOD COUNT ABNORMAL [None]
  - EOSINOPHIL COUNT INCREASED [None]
